FAERS Safety Report 5358333-0 (Version None)
Quarter: 2007Q2

REPORT INFORMATION
  Report Type: 
  Country: None (occurrence: None)
  Receive Date: 20070530
  Receipt Date: 20061018
  Transmission Date: 20071010
  Serious: Yes (Other)
  Sender: FDA-Public Use
  Company Number: US200602001924

PATIENT
  Age: 47 Year
  Sex: Female
  Weight: 111.6 kg

DRUGS (3)
  1. ZYPREXA [Suspect]
     Indication: BIPOLAR I DISORDER
     Dosage: SEE IMAGE
     Dates: start: 20010801, end: 20030519
  2. EFFEXOR [Concomitant]
  3. WELLBUTRIN [Concomitant]

REACTIONS (4)
  - DIABETES MELLITUS [None]
  - DIABETIC KETOACIDOSIS [None]
  - GLYCOSURIA [None]
  - HYPERGLYCAEMIA [None]
